FAERS Safety Report 15754574 (Version 1)
Quarter: 2018Q4

REPORT INFORMATION
  Report Type: Spontaneous
  Country: DE (occurrence: DE)
  Receive Date: 20181224
  Receipt Date: 20181224
  Transmission Date: 20190205
  Serious: Yes (Other)
  Sender: FDA-Public Use
  Company Number: DE-TEVA-2018-DE-990221

PATIENT
  Sex: Female
  Weight: 111 kg

DRUGS (7)
  1. TORASEMID [Concomitant]
     Active Substance: TORSEMIDE
     Route: 065
  2. MOXONIDIN [Concomitant]
     Active Substance: MOXONIDINE
     Route: 065
  3. VALDOXAN [Concomitant]
     Active Substance: AGOMELATINE
     Route: 065
  4. NOVORAPID [Concomitant]
     Active Substance: INSULIN ASPART
     Route: 065
  5. RANITIDIN [Concomitant]
     Active Substance: RANITIDINE HYDROCHLORIDE
     Route: 065
  6. HCT 25 MG [Suspect]
     Active Substance: HYDROCHLOROTHIAZIDE
     Route: 065
  7. PROTAPHANE [Concomitant]
     Active Substance: INSULIN HUMAN
     Route: 065

REACTIONS (1)
  - Basal cell carcinoma [Recovered/Resolved]
